FAERS Safety Report 12858318 (Version 1)
Quarter: 2016Q4

REPORT INFORMATION
  Report Type: Spontaneous
  Country: US (occurrence: US)
  Receive Date: 20161018
  Receipt Date: 20161018
  Transmission Date: 20170207
  Serious: No
  Sender: FDA-Public Use
  Company Number: US-PFIZER INC-2016477960

PATIENT
  Age: 70 Year
  Sex: Female
  Weight: 135 kg

DRUGS (35)
  1. LEVOTHROID [Concomitant]
     Active Substance: LEVOTHYROXINE SODIUM
     Dosage: 50 UG, DAILY, 30-60 MINS BEFORE BREAKFAST
     Route: 048
     Dates: start: 20140426
  2. METOPROLOL. [Concomitant]
     Active Substance: METOPROLOL
     Dosage: 25 MG, 2X/DAY
     Route: 048
     Dates: start: 20161011
  3. SODIUM CHLORIDE. [Concomitant]
     Active Substance: SODIUM CHLORIDE
     Dosage: 3 ML, 3X/DAY
     Route: 042
     Dates: start: 20161011
  4. XANAX [Concomitant]
     Active Substance: ALPRAZOLAM
     Dosage: 0.5 MG, 2X/DAY
     Route: 048
     Dates: start: 20160926
  5. DUONEB [Concomitant]
     Active Substance: ALBUTEROL SULFATE\IPRATROPIUM BROMIDE
     Dosage: 3 ML, 4X/DAY
     Route: 055
     Dates: start: 20160719
  6. FISH OIL [Concomitant]
     Active Substance: FISH OIL
     Dosage: 1 DF, DAILY, 340/1000 MG PER CAPSULE
     Route: 048
     Dates: start: 20140426
  7. KLOR-CON [Concomitant]
     Active Substance: POTASSIUM CHLORIDE
     Dosage: 10 MEQ, 2X/DAY
     Route: 048
     Dates: start: 20160926
  8. LASIX [Concomitant]
     Active Substance: FUROSEMIDE
     Dosage: 40 MG, DAILY
     Route: 048
  9. NORCO [Concomitant]
     Active Substance: ACETAMINOPHEN\HYDROCODONE BITARTRATE
     Indication: PAIN
     Dosage: UNK, AS NEEDED, 3X/DAY, [HYDROCODONE BITARTRATE 10]/[ SALMETEROL XINAFOATE 325]
  10. LOVENOX [Concomitant]
     Active Substance: ENOXAPARIN SODIUM
     Dosage: 40 MG, DAILY
     Route: 058
     Dates: start: 20161010
  11. SYNTHROID [Concomitant]
     Active Substance: LEVOTHYROXINE SODIUM
     Dosage: 50 UG, DAILY BEFORE BREAKFAST
     Dates: start: 20161011
  12. ATARAX [Concomitant]
     Active Substance: HYDROXYZINE\HYDROXYZINE HYDROCHLORIDE
     Indication: PRURITUS
     Dosage: 20 MG, 3X/DAY (AS NEEDED)
     Route: 048
  13. CEPACOL /00104701/ [Concomitant]
     Dosage: UNK
  14. ZYLOPRIM [Concomitant]
     Active Substance: ALLOPURINOL
     Dosage: 200 MG, DAILY (100 MG 2 TABLETS BY MOUTH DAILY)
     Route: 048
     Dates: start: 20160719
  15. FLONASE [Concomitant]
     Active Substance: FLUTICASONE PROPIONATE
     Dosage: 50 UG, UNK, 1 SPRAY INTO EACH NOSTRIL DAILY
     Route: 045
     Dates: start: 20160503
  16. FOLIC ACID. [Concomitant]
     Active Substance: FOLIC ACID
     Dosage: 1 MG, DAILY
     Route: 048
     Dates: start: 20140426
  17. NOVOLOG [Concomitant]
     Active Substance: INSULIN ASPART
     Dosage: UNK, 4X/DAY, BEFORE MEALS AND NIGHTLY SLIDING SCALE
     Route: 058
     Dates: start: 20160501
  18. PRILOSEC [Concomitant]
     Active Substance: OMEPRAZOLE MAGNESIUM
     Dosage: 20 MG, 2X/DAY, AT LEAST 1 HOUR BEFORE A MEAL
     Dates: start: 20140426
  19. ULTRAM [Concomitant]
     Active Substance: TRAMADOL HYDROCHLORIDE
     Dosage: 50 MG, 3X/DAY
     Route: 048
     Dates: start: 20160926
  20. SOLU-MEDROL [Suspect]
     Active Substance: METHYLPREDNISOLONE SODIUM SUCCINATE
     Indication: CHRONIC OBSTRUCTIVE PULMONARY DISEASE
     Dosage: 125 MG, 4X/DAY, EVERY 6 HOURS
     Route: 042
     Dates: start: 20161011
  21. APRESOLINE HYDROCHLORIDE [Concomitant]
     Active Substance: HYDRALAZINE HYDROCHLORIDE
     Dosage: 10 MG, 4X/DAY
     Route: 048
     Dates: start: 20140426
  22. SPIRIVA [Concomitant]
     Active Substance: TIOTROPIUM BROMIDE MONOHYDRATE
     Dosage: 1 DF, DAILY (18MCG INHALATION CAPSULE)
     Route: 055
     Dates: start: 20140426
  23. LEVAQUIN [Concomitant]
     Active Substance: LEVOFLOXACIN
     Dosage: 500 MG, DAILY
     Route: 048
     Dates: start: 20161010
  24. CALCIUM CHLORIDE. [Concomitant]
     Active Substance: CALCIUM CHLORIDE
     Dosage: UNK
  25. ALBUTEROL /00139501/ [Concomitant]
     Active Substance: ALBUTEROL
     Dosage: 3 ML, 4X/DAY, 2.5 MG/ 3ML
     Route: 055
     Dates: start: 20160501
  26. LOTRISONE [Concomitant]
     Active Substance: BETAMETHASONE DIPROPIONATE\CLOTRIMAZOLE
     Dosage: 1 DF, 2X/DAY
     Route: 061
     Dates: start: 20150721
  27. NEURONTIN [Concomitant]
     Active Substance: GABAPENTIN
     Dosage: 300 MG, 3X/DAY
     Route: 048
     Dates: start: 20140426
  28. MACROBID [Concomitant]
     Active Substance: NITROFURANTOIN\NITROFURANTOIN MONOHYDRATE
     Dosage: 100 MG, DAILY
     Route: 048
  29. OXYGEN. [Concomitant]
     Active Substance: OXYGEN
     Dosage: 2 L, UNK
     Dates: start: 20161010
  30. LANTUS [Concomitant]
     Active Substance: INSULIN GLARGINE
     Dosage: 45 IU, 1X/DAY, NIGHTLY
     Dates: start: 20160719
  31. METOPROLOL XL SANDOZ [Concomitant]
     Active Substance: METOPROLOL SUCCINATE
     Dosage: 25 MG, 2X/DAY
     Route: 048
     Dates: start: 20160719
  32. FLUZONE /01389801/ [Concomitant]
     Dosage: 0.5 ML, UNK, ONCE ON DAY 2
     Route: 030
     Dates: start: 20161011, end: 20161012
  33. MUCINEX [Concomitant]
     Active Substance: GUAIFENESIN
     Dosage: 600 MG, 2X/DAY (EXTENDED RELEASE EVERY 12 HOURS)
     Route: 048
     Dates: start: 20160501
  34. ZOLOFT [Concomitant]
     Active Substance: SERTRALINE HYDROCHLORIDE
     Dosage: 50 MG, 2X/DAY (25MG 2 TABLETS 2X A DAY)
     Route: 048
     Dates: start: 20160719
  35. MAGNESIUM OXIDE. [Concomitant]
     Active Substance: MAGNESIUM OXIDE
     Dosage: 400 MG, 2X/DAY
     Route: 048
     Dates: start: 20161011

REACTIONS (5)
  - Throat tightness [Recovered/Resolved]
  - Oral discomfort [Recovered/Resolved]
  - Pharyngeal paraesthesia [Recovered/Resolved]
  - Dyspnoea [Recovered/Resolved]
  - Hypersensitivity [Recovered/Resolved]

NARRATIVE: CASE EVENT DATE: 20161011
